FAERS Safety Report 7069454-9 (Version None)
Quarter: 2010Q4

REPORT INFORMATION
  Report Type: 
  Country: None (occurrence: None)
  Receive Date: 20101028
  Receipt Date: 20101021
  Transmission Date: 20110411
  Serious: Yes (Hospitalization)
  Sender: FDA-Public Use
  Company Number: JP-B.I. PHARMACEUTICALS,INC./RIDGEFIELD-2010-DE-05711GD

PATIENT
  Age: 85 Year
  Sex: Male

DRUGS (3)
  1. MOBIC [Suspect]
     Indication: BACK PAIN
  2. ASPIRIN [Suspect]
     Indication: PARKINSONISM
     Dates: start: 20090101
  3. ASPIRIN [Suspect]
     Indication: LACUNAR INFARCTION

REACTIONS (9)
  - ABDOMINAL PAIN LOWER [None]
  - ANAEMIA [None]
  - DUODENAL FISTULA [None]
  - DUODENAL ULCER [None]
  - DUODENAL ULCER HAEMORRHAGE [None]
  - FAECES DISCOLOURED [None]
  - FAILURE TO ANASTOMOSE [None]
  - MELAENA [None]
  - SUTURE RELATED COMPLICATION [None]
